FAERS Safety Report 6168841-0 (Version None)
Quarter: 2009Q2

REPORT INFORMATION
  Report Type: 
  Country: None (occurrence: None)
  Receive Date: 20090427
  Receipt Date: 20090420
  Transmission Date: 20091009
  Serious: Yes (Death)
  Sender: FDA-Public Use
  Company Number: US-GILEAD-2009-0021555

PATIENT
  Sex: Female
  Weight: 46.308 kg

DRUGS (16)
  1. LETAIRIS [Suspect]
     Indication: PULMONARY ARTERIAL HYPERTENSION
     Route: 048
     Dates: start: 20080731
  2. SILDENAFIL CITRATE [Concomitant]
  3. COUMADIN [Concomitant]
  4. FUROSEMIDE [Concomitant]
  5. DIGOXIN [Concomitant]
  6. SINGULAIR [Concomitant]
  7. IPRATROPIUM BROMIDE [Concomitant]
  8. SPIRIVA [Concomitant]
  9. XOPENEX [Concomitant]
  10. PREDNISONE [Concomitant]
  11. ZOCOR [Concomitant]
  12. GABAPENTIN [Concomitant]
  13. ALPRAZOLAM [Concomitant]
  14. FOSAMAX [Concomitant]
  15. PRILOSEC [Concomitant]
  16. POTASSIUM CHLORIDE [Concomitant]

REACTIONS (1)
  - DEATH [None]
